FAERS Safety Report 10259305 (Version 2)
Quarter: 2014Q2

REPORT INFORMATION
  Report Type: Spontaneous
  Country: US (occurrence: US)
  Receive Date: 20140625
  Receipt Date: 20140625
  Transmission Date: 20141212
  Serious: No
  Sender: FDA-Public Use
  Company Number: US-ASTELLAS-2014US001278

PATIENT
  Sex: Female

DRUGS (1)
  1. VESICARE [Suspect]
     Indication: CYSTITIS INTERSTITIAL
     Route: 065

REACTIONS (4)
  - Off label use [Unknown]
  - Dry mouth [Unknown]
  - Vision blurred [Unknown]
  - Rash [Recovered/Resolved]
